FAERS Safety Report 4446869-6 (Version None)
Quarter: 2004Q3

REPORT INFORMATION
  Report Type: 
  Country: None (occurrence: None)
  Receive Date: 20040908
  Receipt Date: 20040826
  Transmission Date: 20050211
  Serious: Yes (Other)
  Sender: FDA-Public Use
  Company Number: 2004060714

PATIENT
  Age: 73 Year
  Sex: Male

DRUGS (3)
  1. LIPITOR [Suspect]
     Indication: HYPERCHOLESTEROLAEMIA
     Dosage: 10 MG (1O MG, 1 IN 1 D)
  2. ASPIRIN [Concomitant]
  3. CLOPIDOGREL (CLOPIDOGREL) [Concomitant]

REACTIONS (7)
  - ARTHRALGIA [None]
  - CONSTIPATION [None]
  - COUGH [None]
  - DIARRHOEA [None]
  - MYALGIA [None]
  - PHARYNGITIS [None]
  - RASH PRURITIC [None]
